FAERS Safety Report 4506556-2 (Version None)
Quarter: 2004Q4

REPORT INFORMATION
  Report Type: 
  Country: None (occurrence: None)
  Receive Date: 20041122
  Receipt Date: 20041101
  Transmission Date: 20050328
  Serious: Yes (Other)
  Sender: FDA-Public Use
  Company Number: 200413382JP

PATIENT
  Age: 32 Year
  Sex: Female

DRUGS (7)
  1. KETEK [Suspect]
     Indication: BRONCHITIS ACUTE
     Route: 048
     Dates: start: 20041025, end: 20041028
  2. KIPRES [Suspect]
     Indication: ASTHMA
     Dosage: DOSE: UNK
     Route: 048
     Dates: start: 20041025, end: 20041028
  3. FLUTICASONE PROPIONATE [Concomitant]
     Indication: ASTHMA
     Dosage: DOSE: UNK
     Route: 055
     Dates: start: 20040920, end: 20041028
  4. SEREVENT [Concomitant]
     Indication: ASTHMA
     Dosage: DOSE: UNK
     Route: 055
     Dates: start: 20040920, end: 20041028
  5. ALESION [Concomitant]
     Indication: RHINITIS ALLERGIC
     Dosage: DOSE: UNK
     Route: 048
     Dates: start: 20040920, end: 20041028
  6. ALLEGRA [Concomitant]
     Indication: RHINITIS ALLERGIC
     Route: 048
     Dates: start: 20041020, end: 20041024
  7. ALDECIN [Concomitant]
     Indication: RHINITIS ALLERGIC
     Dosage: DOSE: UNK
     Route: 055
     Dates: start: 20041020, end: 20041024

REACTIONS (6)
  - CHEST PAIN [None]
  - DISCOMFORT [None]
  - EYELID OEDEMA [None]
  - FACIAL PAIN [None]
  - ORAL PAIN [None]
  - STEVENS-JOHNSON SYNDROME [None]
